FAERS Safety Report 6213627-1 (Version None)
Quarter: 2009Q2

REPORT INFORMATION
  Report Type: 
  Country: None (occurrence: None)
  Receive Date: 20090601
  Receipt Date: 20090521
  Transmission Date: 20091009
  Serious: Yes (Other)
  Sender: FDA-Public Use
  Company Number: 2009US001901

PATIENT
  Sex: Female

DRUGS (1)
  1. PROGRAF [Suspect]
     Indication: HEART TRANSPLANT

REACTIONS (3)
  - BIOPSY HEART ABNORMAL [None]
  - EOSINOPHILIA [None]
  - HEART TRANSPLANT REJECTION [None]
